FAERS Safety Report 23887732 (Version 1)
Quarter: 2024Q2

REPORT INFORMATION
  Report Type: Other
  Country: CA (occurrence: CA)
  Receive Date: 20240523
  Receipt Date: 20240523
  Transmission Date: 20240716
  Serious: Yes (Hospitalization)
  Sender: FDA-Public Use
  Company Number: CA-APOTEX-2024AP005989

PATIENT
  Age: 76 Year
  Sex: Female

DRUGS (10)
  1. LEFLUNOMIDE [Suspect]
     Active Substance: LEFLUNOMIDE
     Indication: Cytomegalovirus colitis
     Dosage: UNK
     Route: 065
  2. VALGANCICLOVIR [Suspect]
     Active Substance: VALGANCICLOVIR
     Indication: Cytomegalovirus colitis
     Dosage: UNK
     Route: 065
  3. FOSCARNET SODIUM [Suspect]
     Active Substance: FOSCARNET SODIUM
     Indication: Cytomegalovirus colitis
     Dosage: UNK
     Route: 042
  4. GANCICLOVIR [Suspect]
     Active Substance: GANCICLOVIR
     Indication: Cytomegalovirus colitis
     Dosage: UNK
     Route: 042
  5. HUMAN IMMUNOGLOBULIN G [Suspect]
     Active Substance: HUMAN IMMUNOGLOBULIN G
     Indication: Cytomegalovirus colitis
     Dosage: UNK, Q.WK.
     Route: 065
  6. INTERFERON ALFA-2A [Suspect]
     Active Substance: INTERFERON ALFA-2A
     Indication: Cytomegalovirus colitis
     Dosage: UNK
     Route: 065
  7. ALDESLEUKIN [Suspect]
     Active Substance: ALDESLEUKIN
     Indication: Cytomegalovirus colitis
     Dosage: UNK
     Route: 065
  8. CIDOFOVIR [Suspect]
     Active Substance: CIDOFOVIR
     Indication: Cytomegalovirus colitis
     Dosage: UNK
     Route: 065
  9. PREVYMIS [Suspect]
     Active Substance: LETERMOVIR
     Indication: Cytomegalovirus colitis
     Dosage: UNK
     Route: 065
  10. ALDESLEUKIN [Suspect]
     Active Substance: ALDESLEUKIN
     Indication: Cytomegalovirus colitis
     Dosage: UNK
     Route: 065

REACTIONS (3)
  - Multiple-drug resistance [Unknown]
  - Off label use [Unknown]
  - Drug ineffective [Unknown]
